FAERS Safety Report 15702868 (Version 6)
Quarter: 2020Q4

REPORT INFORMATION
  Report Type: Spontaneous
  Country: IE (occurrence: IE)
  Receive Date: 20181210
  Receipt Date: 20201006
  Transmission Date: 20210113
  Serious: Yes (Death, Other)
  Sender: FDA-Public Use
  Company Number: IE-ROCHE-2225480

PATIENT
  Sex: Male

DRUGS (10)
  1. POLATUZUMAB VEDOTIN. [Suspect]
     Active Substance: POLATUZUMAB VEDOTIN
     Indication: DIFFUSE LARGE B-CELL LYMPHOMA
     Route: 065
  2. ONCOVIN [Concomitant]
     Active Substance: VINCRISTINE SULFATE
  3. DEXAMETHASONE. [Concomitant]
     Active Substance: DEXAMETHASONE
  4. CYCLOPHOSPHAMIDE. [Concomitant]
     Active Substance: CYCLOPHOSPHAMIDE
  5. DOXORUBICIN [Concomitant]
     Active Substance: DOXORUBICIN
  6. ETOPOSIDE. [Concomitant]
     Active Substance: ETOPOSIDE
  7. MABTHERA [Suspect]
     Active Substance: RITUXIMAB
     Indication: DIFFUSE LARGE B-CELL LYMPHOMA STAGE IV
     Route: 042
  8. PREDNISOLONE. [Concomitant]
     Active Substance: PREDNISOLONE
  9. CYTARABINE. [Concomitant]
     Active Substance: CYTARABINE
  10. CISPLATIN. [Concomitant]
     Active Substance: CISPLATIN

REACTIONS (5)
  - Intentional product use issue [Unknown]
  - Sepsis [Fatal]
  - Diffuse large B-cell lymphoma refractory [Unknown]
  - Off label use [Unknown]
  - Lymphoma [Fatal]

NARRATIVE: CASE EVENT DATE: 201711
